FAERS Safety Report 5247605-6 (Version None)
Quarter: 2007Q1

REPORT INFORMATION
  Report Type: 
  Country: None (occurrence: None)
  Receive Date: 20070227
  Receipt Date: 20061009
  Transmission Date: 20070707
  Serious: No
  Sender: FDA-Public Use
  Company Number: US-AMGEN-US196220

PATIENT
  Sex: Female

DRUGS (3)
  1. KEPIVANCE [Suspect]
     Indication: STOMATITIS
     Dates: start: 20060901, end: 20061001
  2. BUSULFAN [Concomitant]
  3. CYTOXAN [Concomitant]

REACTIONS (2)
  - PRURITUS [None]
  - RASH MACULO-PAPULAR [None]
